FAERS Safety Report 16667467 (Version 1)
Quarter: 2019Q3

REPORT INFORMATION
  Report Type: Spontaneous
  Country: US (occurrence: US)
  Receive Date: 20190805
  Receipt Date: 20190805
  Transmission Date: 20191004
  Serious: Yes (Other)
  Sender: FDA-Public Use
  Company Number: US-PFIZER INC-2019329113

PATIENT
  Age: 52 Year
  Sex: Female
  Weight: 68.4 kg

DRUGS (3)
  1. SOLU-CORTEF [Suspect]
     Active Substance: HYDROCORTISONE SODIUM SUCCINATE
     Indication: ADDISON^S DISEASE
     Dosage: 100 MG, AS NEEDED
     Route: 042
  2. HYDROCORTISONE. [Concomitant]
     Active Substance: HYDROCORTISONE
     Indication: STEROID THERAPY
     Dosage: 10 MG, 2X/DAY (EVERY MORNING AND AFTERNOON DAILY )
     Route: 048
  3. SOLU-CORTEF [Suspect]
     Active Substance: HYDROCORTISONE SODIUM SUCCINATE
     Indication: STEROID THERAPY

REACTIONS (1)
  - Loss of consciousness [Recovered/Resolved]

NARRATIVE: CASE EVENT DATE: 20190424
